FAERS Safety Report 6091308-5 (Version None)
Quarter: 2009Q1

REPORT INFORMATION
  Report Type: 
  Country: None (occurrence: None)
  Receive Date: 20090225
  Receipt Date: 20090213
  Transmission Date: 20090719
  Serious: Yes (Hospitalization)
  Sender: FDA-Public Use
  Company Number: US-ROCHE-614586

PATIENT
  Age: 69 Year
  Sex: Female

DRUGS (2)
  1. CELLCEPT [Suspect]
     Dosage: FORM: PILL, 1000 MG IN MORNING AND 1000 MG AT NIGHT
     Route: 065
     Dates: start: 19910101
  2. PROGRAFT [Concomitant]

REACTIONS (4)
  - DIARRHOEA [None]
  - DIVERTICULITIS [None]
  - TREMOR [None]
  - VOMITING [None]
